FAERS Safety Report 25156783 (Version 1)
Quarter: 2025Q2

REPORT INFORMATION
  Report Type: Spontaneous
  Country: CN (occurrence: CN)
  Receive Date: 20250403
  Receipt Date: 20250403
  Transmission Date: 20250717
  Serious: Yes (Hospitalization)
  Sender: ELI LILLY AND CO
  Company Number: CN-Merck Healthcare KGaA-2025015105

PATIENT
  Age: 49 Year
  Sex: Male
  Weight: 53 kg

DRUGS (5)
  1. ERBITUX [Suspect]
     Active Substance: CETUXIMAB
     Indication: Rectal neoplasm
     Route: 041
     Dates: start: 20250208, end: 20250208
  2. LEUCOVORIN CALCIUM [Suspect]
     Active Substance: LEUCOVORIN CALCIUM
     Indication: Rectal neoplasm
     Dosage: .62 G, DAILY
     Route: 041
     Dates: start: 20250208, end: 20250208
  3. OXALIPLATIN [Suspect]
     Active Substance: OXALIPLATIN
     Indication: Rectal neoplasm
     Dosage: 130 MG, DAILY
     Route: 041
     Dates: start: 20250208, end: 20250208
  4. FLUOROURACIL [Suspect]
     Active Substance: FLUOROURACIL
     Indication: Rectal neoplasm
     Dosage: .625 G, DAILY
     Route: 042
     Dates: start: 20250208, end: 20250208
  5. FLUOROURACIL [Suspect]
     Active Substance: FLUOROURACIL
     Dosage: 1.875 G, DAILY
     Route: 042
     Dates: start: 20250208, end: 20250209

REACTIONS (1)
  - Myelosuppression [Recovering/Resolving]

NARRATIVE: CASE EVENT DATE: 20250225
